FAERS Safety Report 8220813 (Version 2)
Quarter: 2013Q2

REPORT INFORMATION
  Report Type: Spontaneous
  Country: VE (occurrence: VE)
  Receive Date: 20111102
  Receipt Date: 20130513
  Transmission Date: 20140414
  Serious: Yes (Hospitalization, Other)
  Sender: FDA-Public Use
  Company Number: PHHY2011VE95946

PATIENT
  Age: 80 Year
  Sex: Female

DRUGS (8)
  1. ACLASTA [Suspect]
     Indication: OSTEOPOROSIS
     Dosage: 5 MG, YEARLY
     Route: 042
     Dates: start: 201005
  2. ACLASTA [Suspect]
     Dosage: 5 MG, YEARLY
     Route: 042
     Dates: start: 201105
  3. NATRILIX [Concomitant]
     Indication: DIURETIC THERAPY
     Dosage: 1.5 MG, UNK
     Route: 048
  4. OMEPRAZOLE [Concomitant]
     Indication: PROPHYLAXIS AGAINST GASTROINTESTINAL ULCER
     Dosage: 20 MG,
     Route: 048
  5. SERC [Concomitant]
     Indication: VERTIGO
     Dosage: 16 MG,
     Route: 048
  6. FLUNARIZINE [Concomitant]
     Dosage: 10 MG, UNK
     Route: 048
  7. OMEGA 3 [Concomitant]
     Dosage: UNK UKN, UNK
  8. CORASPIRINA [Concomitant]
     Dosage: UNK UKN, UNK

REACTIONS (7)
  - Gallbladder disorder [Recovered/Resolved]
  - Fall [Recovered/Resolved]
  - Blindness [Recovered/Resolved]
  - Inflammation [Recovered/Resolved]
  - Rash [Recovered/Resolved]
  - Dizziness [Recovered/Resolved]
  - Vertigo [Recovered/Resolved]
